FAERS Safety Report 8430199-1 (Version None)
Quarter: 2012Q2

REPORT INFORMATION
  Report Type: 
  Country: None (occurrence: None)
  Receive Date: 20120612
  Receipt Date: 20120528
  Transmission Date: 20120825
  Serious: Yes (Other)
  Sender: FDA-Public Use
  Company Number: CA-ROCHE-781876

PATIENT
  Age: 70 Year
  Sex: Female

DRUGS (8)
  1. PAMIDRONATE DISODIUM [Suspect]
     Indication: PRODUCT USED FOR UNKNOWN INDICATION
     Dosage: DRUG NAME REPORTED AS PAMIDRONATE DISODIUM FOR INJECTION
     Route: 042
  2. FLUOROURACIL [Suspect]
     Indication: PRODUCT USED FOR UNKNOWN INDICATION
     Route: 042
  3. METHOTREXATE [Suspect]
     Indication: PRODUCT USED FOR UNKNOWN INDICATION
     Route: 013
  4. GEMCITABINE [Suspect]
     Indication: PRODUCT USED FOR UNKNOWN INDICATION
     Route: 042
  5. CYCLOPHOSPHAMIDE [Suspect]
     Indication: PRODUCT USED FOR UNKNOWN INDICATION
  6. XELODA [Suspect]
     Indication: PRODUCT USED FOR UNKNOWN INDICATION
     Route: 065
  7. EPIRUBICIN HYDROCHLORIDE [Suspect]
     Indication: PRODUCT USED FOR UNKNOWN INDICATION
     Route: 042
  8. TAXOTERE [Suspect]
     Indication: PRODUCT USED FOR UNKNOWN INDICATION
     Route: 042

REACTIONS (14)
  - JAW DISORDER [None]
  - SWELLING FACE [None]
  - INFECTION [None]
  - BREAST LUMP REMOVAL [None]
  - BONE DISORDER [None]
  - METASTASES TO LIVER [None]
  - MUCOSAL INFLAMMATION [None]
  - METASTASES TO BONE [None]
  - NEOPLASM MALIGNANT [None]
  - ORAL SURGERY [None]
  - OSTEONECROSIS OF JAW [None]
  - BUCCAL MUCOSAL ROUGHENING [None]
  - LOCALISED INFECTION [None]
  - LYMPHADENECTOMY [None]
